FAERS Safety Report 16665270 (Version 1)
Quarter: 2019Q3

REPORT INFORMATION
  Report Type: Spontaneous
  Country: US (occurrence: US)
  Receive Date: 20190803
  Receipt Date: 20190803
  Transmission Date: 20191004
  Serious: Yes (Other)
  Sender: FDA-Public Use
  Company Number: US-ACCORD-128733

PATIENT
  Age: 45 Year
  Sex: Female
  Weight: 99.34 kg

DRUGS (12)
  1. BENADRYL [Suspect]
     Active Substance: DIPHENHYDRAMINE HYDROCHLORIDE
     Indication: BREAST CANCER
     Dates: start: 20161006, end: 20170106
  2. PARAPLATIN [Suspect]
     Active Substance: CARBOPLATIN
     Indication: BREAST CANCER
     Dates: start: 20161006, end: 20170106
  3. EMEND [Suspect]
     Active Substance: APREPITANT
     Indication: BREAST CANCER
     Dates: start: 20161006, end: 20170106
  4. SODIUM CHLORIDE. [Suspect]
     Active Substance: SODIUM CHLORIDE
     Indication: BREAST CANCER
     Dates: start: 20161006, end: 20170106
  5. PERJETA [Suspect]
     Active Substance: PERTUZUMAB
     Indication: BREAST CANCER
     Dates: start: 20161006, end: 20170106
  6. HERCEPTIN [Suspect]
     Active Substance: TRASTUZUMAB
     Indication: BREAST CANCER
     Dates: start: 20161006, end: 20170106
  7. DECADRON [Suspect]
     Active Substance: DEXAMETHASONE
     Indication: BREAST CANCER
     Dates: start: 20161006, end: 20170106
  8. PEPCID [Suspect]
     Active Substance: FAMOTIDINE
     Indication: BREAST CANCER
     Dates: start: 20161006, end: 20170106
  9. ALOXI [Suspect]
     Active Substance: PALONOSETRON HYDROCHLORIDE
     Indication: BREAST CANCER
     Dates: start: 20161006, end: 20170106
  10. HEPARIN [Suspect]
     Active Substance: HEPARIN SODIUM
     Indication: BREAST CANCER
     Dates: start: 20161006, end: 20170106
  11. NEULASTA [Suspect]
     Active Substance: PEGFILGRASTIM
     Indication: BREAST CANCER
     Dates: start: 20161006, end: 20170106
  12. DOCETAXEL ACCORD [Suspect]
     Active Substance: DOCETAXEL
     Indication: BREAST CANCER
     Dates: start: 20161006, end: 20170106

REACTIONS (1)
  - Alopecia [Not Recovered/Not Resolved]

NARRATIVE: CASE EVENT DATE: 201708
